FAERS Safety Report 9773383 (Version 2)
Quarter: 2013Q4

REPORT INFORMATION
  Report Type: Spontaneous
  Country: UA (occurrence: UA)
  Receive Date: 20131219
  Receipt Date: 20131223
  Transmission Date: 20140711
  Serious: Yes (Life-Threatening, Other)
  Sender: FDA-Public Use
  Company Number: UA-ASTRAZENECA-2013SE92059

PATIENT
  Sex: Female

DRUGS (3)
  1. BRILINTA [Suspect]
     Indication: ACUTE CORONARY SYNDROME
     Route: 048
  2. BRILINTA [Suspect]
     Indication: ACUTE CORONARY SYNDROME
     Dosage: LOADING DOSE OF 180 MG
     Route: 048
  3. BRILINTA [Suspect]
     Indication: ACUTE CORONARY SYNDROME
     Route: 048

REACTIONS (4)
  - Chest pain [Recovered/Resolved]
  - Ischaemia [Recovered/Resolved]
  - Fear of disease [Recovered/Resolved]
  - Drug dose omission [Recovered/Resolved]
